FAERS Safety Report 14312431 (Version 2)
Quarter: 2018Q1

REPORT INFORMATION
  Report Type: Spontaneous
  Country: US (occurrence: US)
  Receive Date: 20171221
  Receipt Date: 20180312
  Transmission Date: 20180509
  Serious: Yes (Other)
  Sender: FDA-Public Use
  Company Number: US-ALLERGAN-1772832US

PATIENT
  Age: 67 Year
  Sex: Male

DRUGS (6)
  1. OMEPRAZOLE. [Interacting]
     Active Substance: OMEPRAZOLE
     Dosage: 20 MG, BID
     Route: 065
     Dates: start: 20160515
  2. CITALOPRAM HYDROBROMIDE - BP [Suspect]
     Active Substance: CITALOPRAM HYDROBROMIDE
     Indication: ANXIETY
     Dosage: 10 MG, QD
     Route: 065
     Dates: start: 20160302
  3. CITALOPRAM HYDROBROMIDE - BP [Interacting]
     Active Substance: CITALOPRAM HYDROBROMIDE
     Dosage: 15 MG, QD
     Route: 065
     Dates: start: 20160515
  4. OMEPRAZOLE. [Interacting]
     Active Substance: OMEPRAZOLE
     Indication: GASTROOESOPHAGEAL REFLUX DISEASE
     Dosage: 20 MG, QD
     Route: 065
     Dates: start: 20160302
  5. HYDROCHLOROTHIAZIDE. [Concomitant]
     Active Substance: HYDROCHLOROTHIAZIDE
     Indication: PRODUCT USED FOR UNKNOWN INDICATION
     Dosage: UNK
     Route: 065
  6. LISINOPRIL. [Concomitant]
     Active Substance: LISINOPRIL
     Indication: PRODUCT USED FOR UNKNOWN INDICATION
     Route: 065

REACTIONS (11)
  - Anxiety [Unknown]
  - Abdominal pain [Unknown]
  - Feeling abnormal [Unknown]
  - Insomnia [Unknown]
  - Palpitations [Unknown]
  - Inappropriate antidiuretic hormone secretion [Recovering/Resolving]
  - Lethargy [Unknown]
  - Decreased appetite [Unknown]
  - Drug interaction [Recovering/Resolving]
  - Contraindicated product administered [Unknown]
  - Dizziness [Unknown]

NARRATIVE: CASE EVENT DATE: 2016
